FAERS Safety Report 5936434-3 (Version None)
Quarter: 2008Q4

REPORT INFORMATION
  Report Type: 
  Country: None (occurrence: None)
  Receive Date: 20081020
  Receipt Date: 20080814
  Transmission Date: 20090506
  Serious: Yes (Other)
  Sender: FDA-Public Use
  Company Number: US-WYE-H05592508

PATIENT
  Age: 46 Year
  Sex: Male
  Weight: 83.99 kg

DRUGS (1)
  1. ADVIL PM [Suspect]
     Indication: INSOMNIA
     Dosage: 2 CAPLETS AS NEEDED (ON 3 SEPARATE OCCASIONS), ORAL
     Route: 048
     Dates: start: 20080804, end: 20080810

REACTIONS (3)
  - DRUG INEFFECTIVE [None]
  - FEELING JITTERY [None]
  - HYPERVIGILANCE [None]
